FAERS Safety Report 22138158 (Version 2)
Quarter: 2023Q2

REPORT INFORMATION
  Report Type: Report from Study
  Country: EG (occurrence: EG)
  Receive Date: 20230325
  Receipt Date: 20230627
  Transmission Date: 20230722
  Serious: Yes (Other)
  Sender: FDA-Public Use
  Company Number: EG-002147023-NVSC2023EG065658

PATIENT
  Age: 12 Year
  Sex: Female

DRUGS (1)
  1. OMNITROPE [Suspect]
     Active Substance: SOMATROPIN
     Indication: Growth hormone deficiency
     Dosage: 1.2 MG, QD
     Route: 058
     Dates: start: 20220531

REACTIONS (6)
  - Injection site pain [Not Recovered/Not Resolved]
  - Vitamin D deficiency [Unknown]
  - Multiple use of single-use product [Not Recovered/Not Resolved]
  - Product preparation error [Not Recovered/Not Resolved]
  - Wrong technique in device usage process [Not Recovered/Not Resolved]
  - Incorrect dose administered [Not Recovered/Not Resolved]

NARRATIVE: CASE EVENT DATE: 20220531
